FAERS Safety Report 13895256 (Version 3)
Quarter: 2017Q4

REPORT INFORMATION
  Report Type: Report from Study
  Country: CA (occurrence: CA)
  Receive Date: 20170823
  Receipt Date: 20171009
  Transmission Date: 20180320
  Serious: Yes (Death, Other)
  Sender: FDA-Public Use
  Company Number: CA-AMGEN-CANSL2017125951

PATIENT
  Sex: Female

DRUGS (4)
  1. ENBREL [Suspect]
     Active Substance: ETANERCEPT
     Dosage: 25 MG, UNK
     Route: 065
  2. FENTANYL. [Concomitant]
     Active Substance: FENTANYL
     Dosage: 100 MG, UNK
  3. TYLENOL [Concomitant]
     Active Substance: ACETAMINOPHEN
     Dosage: UNK
  4. ENBREL [Suspect]
     Active Substance: ETANERCEPT
     Indication: RHEUMATOID ARTHRITIS
     Dosage: 25 MG, UNK
     Route: 065
     Dates: start: 20010430

REACTIONS (16)
  - Lymph node pain [Not Recovered/Not Resolved]
  - Gastrointestinal disorder [Unknown]
  - Cholelithiasis [Unknown]
  - Lymphadenopathy [Not Recovered/Not Resolved]
  - Pneumonia [Unknown]
  - Joint swelling [Unknown]
  - Dyspnoea [Unknown]
  - Asthenia [Unknown]
  - Fall [Fatal]
  - Abdominal pain [Unknown]
  - Femur fracture [Fatal]
  - Myocardial infarction [Unknown]
  - Pruritus [Unknown]
  - Lung neoplasm malignant [Unknown]
  - Gait disturbance [Unknown]
  - Peripheral swelling [Unknown]

NARRATIVE: CASE EVENT DATE: 2009
